FAERS Safety Report 4644495-7 (Version None)
Quarter: 2005Q2

REPORT INFORMATION
  Report Type: 
  Country: None (occurrence: None)
  Receive Date: 20050422
  Receipt Date: 20050422
  Transmission Date: 20051028
  Serious: Yes (Hospitalization)
  Sender: FDA-Public Use
  Company Number: None

PATIENT
  Age: 42 Year
  Sex: Male
  Weight: 102.0593 kg

DRUGS (1)
  1. LITHIUM ER [Suspect]
     Indication: AFFECTIVE DISORDER
     Dosage: ONE Q AM + TWO HS
     Dates: start: 20050309, end: 20050311

REACTIONS (1)
  - DIABETES INSIPIDUS [None]
